FAERS Safety Report 10441597 (Version 1)
Quarter: 2014Q3

REPORT INFORMATION
  Report Type: Report from Study
  Country: BR (occurrence: BR)
  Receive Date: 20140908
  Receipt Date: 20140908
  Transmission Date: 20150326
  Serious: Yes (Hospitalization, Other)
  Sender: FDA-Public Use
  Company Number: PHHY2014BR115196

PATIENT
  Age: 73 Year
  Sex: Male
  Weight: 70 kg

DRUGS (4)
  1. EXELON PATCH [Suspect]
     Active Substance: RIVASTIGMINE
     Indication: MEMORY IMPAIRMENT
     Dosage: 9 MG (5 CM2), QD (AT NIGHT)
     Route: 062
     Dates: start: 201404
  2. EXELON PATCH [Suspect]
     Active Substance: RIVASTIGMINE
     Dosage: 27 MG (15 CM2), QD (AT NIGHT)
     Route: 062
  3. EXELON PATCH [Suspect]
     Active Substance: RIVASTIGMINE
     Dosage: 18 MG (10 CM2), QD (AT NIGHT)
     Route: 062
  4. EBIX [Concomitant]
     Active Substance: MEMANTINE HYDROCHLORIDE
     Indication: MEMORY IMPAIRMENT
     Dosage: 1 DF, BID (1 TABLET IN THE MORNING AND 1 TABLET AT NIGHT)
     Dates: start: 201405

REACTIONS (5)
  - Epistaxis [Unknown]
  - Infarction [Unknown]
  - Agitation [Unknown]
  - Thrombosis [Unknown]
  - Lung infection [Unknown]

NARRATIVE: CASE EVENT DATE: 20140830
